FAERS Safety Report 6228432-X (Version None)
Quarter: 2009Q2

REPORT INFORMATION
  Report Type: 
  Country: None (occurrence: None)
  Receive Date: 20090612
  Receipt Date: 20090602
  Transmission Date: 20091009
  Serious: Yes (Hospitalization)
  Sender: FDA-Public Use
  Company Number: US-ELI_LILLY_AND_COMPANY-US200906000808

PATIENT
  Sex: Female

DRUGS (1)
  1. FORTEO [Suspect]
     Dates: end: 20090201

REACTIONS (1)
  - HOSPITALISATION [None]
